FAERS Safety Report 19656371 (Version 1)
Quarter: 2021Q3

REPORT INFORMATION
  Report Type: Spontaneous
  Country: DE (occurrence: DE)
  Receive Date: 20210804
  Receipt Date: 20210804
  Transmission Date: 20211014
  Serious: Yes (Death, Life-Threatening, Hospitalization)
  Sender: FDA-Public Use
  Company Number: DE-ACCORD-234195

PATIENT
  Age: 89 Year
  Sex: Female
  Weight: 63 kg

DRUGS (7)
  1. TINZAPARIN [Concomitant]
     Active Substance: TINZAPARIN
  2. FORTIMEL [Concomitant]
     Active Substance: DIETARY SUPPLEMENT
     Dosage: 3X1 FL.
     Route: 048
     Dates: start: 20210107, end: 20210131
  3. MOVICOL [Concomitant]
     Active Substance: POLYETHYLENE GLYCOL 3350\POTASSIUM CHLORIDE\SODIUM BICARBONATE\SODIUM CHLORIDE
  4. CALCIUM VIT D [Concomitant]
     Active Substance: CALCIUM\CHOLECALCIFEROL
     Indication: OSTEOPOROSIS
     Dosage: 600MG/1000
     Route: 048
     Dates: start: 20201217, end: 20210129
  5. TILIDINE [Concomitant]
     Active Substance: TILIDINE
  6. TIGECYCLINE. [Suspect]
     Active Substance: TIGECYCLINE
     Indication: EXTERNAL FIXATION OF FRACTURE
     Dosage: DAILY DOSE: 200 MG MILLGRAM(S) EVERY DAYS 2 SEPARATED DOSES
     Route: 042
     Dates: start: 20210112, end: 20210126
  7. ENALAPRIL MALEATE AND HYDROCHLOROTHIAZIDE [Concomitant]
     Active Substance: ENALAPRIL MALEATE\HYDROCHLOROTHIAZIDE

REACTIONS (3)
  - Hepatic enzyme increased [Fatal]
  - Off label use [Unknown]
  - Thrombocytopenia [Fatal]

NARRATIVE: CASE EVENT DATE: 20210118
